FAERS Safety Report 22221376 (Version 1)
Quarter: 2023Q2

REPORT INFORMATION
  Report Type: Spontaneous
  Country: CN (occurrence: None)
  Receive Date: 20230418
  Receipt Date: 20230418
  Transmission Date: 20230722
  Serious: Yes (Other)
  Sender: FDA-Public Use
  Company Number: CN-ROCHE-3329234

PATIENT

DRUGS (1)
  1. ALECENSA [Suspect]
     Active Substance: ALECTINIB HYDROCHLORIDE
     Indication: Product used for unknown indication
     Route: 048

REACTIONS (9)
  - Liver injury [Unknown]
  - Fatigue [Unknown]
  - Muscular weakness [Unknown]
  - Oedema peripheral [Unknown]
  - Eye oedema [Unknown]
  - Headache [Unknown]
  - Pain in extremity [Unknown]
  - Weight increased [Unknown]
  - Photosensitivity reaction [Unknown]
